FAERS Safety Report 10133540 (Version 1)
Quarter: 2014Q2

REPORT INFORMATION
  Report Type: Spontaneous
  Country: US (occurrence: US)
  Receive Date: 20140428
  Receipt Date: 20140428
  Transmission Date: 20141212
  Serious: Yes (Other)
  Sender: FDA-Public Use
  Company Number: US-BRISTOL-MYERS SQUIBB COMPANY-20653036

PATIENT
  Age: 59 Year
  Sex: Female

DRUGS (5)
  1. ABILIFY TABS 5 MG [Suspect]
     Dosage: DOSE REDUCED:2MG?STARTED BACK:JAN.
     Dates: start: 201401
  2. PROZAC [Concomitant]
  3. LAMICTAL [Concomitant]
  4. LOSARTAN [Concomitant]
  5. PROPRANOLOL [Concomitant]

REACTIONS (11)
  - Osteomyelitis [Unknown]
  - Wrong technique in drug usage process [Unknown]
  - Fatigue [Unknown]
  - Insomnia [Unknown]
  - Vision blurred [Unknown]
  - Photosensitivity reaction [Unknown]
  - Dysphagia [Unknown]
  - Nervousness [Unknown]
  - Throat tightness [Unknown]
  - Tremor [Unknown]
  - Dental caries [Unknown]
